FAERS Safety Report 23714461 (Version 2)
Quarter: 2024Q2

REPORT INFORMATION
  Report Type: Report from Study
  Country: MX (occurrence: MX)
  Receive Date: 20240406
  Receipt Date: 20240611
  Transmission Date: 20240716
  Serious: Yes (Hospitalization)
  Sender: FDA-Public Use
  Company Number: MX-ABBOTT-2024A-1379922

PATIENT
  Age: 86 Year
  Sex: Male

DRUGS (2)
  1. LIPIDIL [Suspect]
     Active Substance: FENOFIBRATE
     Indication: Diabetic retinopathy
     Route: 048
     Dates: start: 20240227, end: 20240409
  2. INSULIN NOS [Concomitant]
     Active Substance: INSULIN NOS
     Indication: Hyperglycaemia

REACTIONS (2)
  - Hypoglycaemia [Recovered/Resolved]
  - Hypoglycaemia [Recovered/Resolved]

NARRATIVE: CASE EVENT DATE: 20240312
